FAERS Safety Report 4453056-4 (Version None)
Quarter: 2004Q3

REPORT INFORMATION
  Report Type: 
  Country: None (occurrence: None)
  Receive Date: 20040916
  Receipt Date: 20040916
  Transmission Date: 20050211
  Serious: Yes (Hospitalization)
  Sender: FDA-Public Use
  Company Number: None

PATIENT
  Sex: Female
  Weight: 70.7611 kg

DRUGS (3)
  1. GEMCITABINE [Suspect]
     Dosage: 1780 MG IV
     Route: 042
     Dates: start: 20040903
  2. GEMCITABINE [Suspect]
     Dosage: 1780 MG IV
     Route: 042
     Dates: start: 20040910
  3. DOCETAXOL [Concomitant]

REACTIONS (8)
  - BODY TEMPERATURE INCREASED [None]
  - DEEP VEIN THROMBOSIS [None]
  - HYPOKALAEMIA [None]
  - NAUSEA [None]
  - PRURITUS [None]
  - RASH [None]
  - RENAL FAILURE ACUTE [None]
  - VOMITING [None]
